FAERS Safety Report 6110381-9 (Version None)
Quarter: 2009Q1

REPORT INFORMATION
  Report Type: 
  Country: None (occurrence: None)
  Receive Date: 20090309
  Receipt Date: 20090309
  Transmission Date: 20090719
  Serious: Yes (Other)
  Sender: FDA-Public Use
  Company Number: None

PATIENT
  Age: 54 Year
  Sex: Male
  Weight: 65.7716 kg

DRUGS (2)
  1. CYMBALTA [Suspect]
     Indication: PAIN
     Dosage: 30MG 1/DAY PO
     Route: 048
     Dates: start: 20081101, end: 20090107
  2. CYMBALTA [Suspect]
     Indication: POOR QUALITY SLEEP
     Dosage: 30MG 1/DAY PO
     Route: 048
     Dates: start: 20081101, end: 20090107

REACTIONS (6)
  - ACTIVITIES OF DAILY LIVING IMPAIRED [None]
  - DYSKINESIA [None]
  - IMPAIRED WORK ABILITY [None]
  - MUSCLE TWITCHING [None]
  - SOMNOLENCE [None]
  - TINNITUS [None]
